FAERS Safety Report 5943841-1 (Version None)
Quarter: 2008Q4

REPORT INFORMATION
  Report Type: 
  Country: None (occurrence: None)
  Receive Date: 20081106
  Receipt Date: 20081027
  Transmission Date: 20090506
  Serious: Yes (Other)
  Sender: FDA-Public Use
  Company Number: US-ELI_LILLY_AND_COMPANY-US200810006297

PATIENT
  Sex: Female

DRUGS (8)
  1. FORTEO [Suspect]
  2. PLAVIX [Concomitant]
  3. ARICEPT [Concomitant]
  4. POTASSIUM CHLORIDE [Concomitant]
  5. METHOCARBAMOL [Concomitant]
  6. DIAZEPAM [Concomitant]
  7. SIMVASTATIN [Concomitant]
  8. HYDROCODONE [Concomitant]

REACTIONS (3)
  - CEREBROVASCULAR ACCIDENT [None]
  - MUSCLE CONTRACTURE [None]
  - SCOLIOSIS [None]
